FAERS Safety Report 13966385 (Version 2)
Quarter: 2017Q4

REPORT INFORMATION
  Report Type: Spontaneous
  Country: US (occurrence: US)
  Receive Date: 20170913
  Receipt Date: 20171105
  Transmission Date: 20180320
  Serious: No
  Sender: FDA-Public Use
  Company Number: US-009507513-1709USA004058

PATIENT
  Age: 33 Year
  Sex: Female
  Weight: 105.22 kg

DRUGS (2)
  1. CYMBALTA [Concomitant]
     Active Substance: DULOXETINE HYDROCHLORIDE
  2. NEXPLANON [Suspect]
     Active Substance: ETONOGESTREL
     Indication: CONTRACEPTION
     Dosage: 68 MG/1 ROD EVERY 3 YEARS, IN THE LEFT ARM
     Route: 059
     Dates: start: 2013, end: 20170824

REACTIONS (4)
  - Device deployment issue [Recovered/Resolved]
  - Incorrect drug administration duration [Recovered/Resolved]
  - Device breakage [Recovered/Resolved]
  - Menstruation irregular [Recovered/Resolved]

NARRATIVE: CASE EVENT DATE: 2017
